FAERS Safety Report 22283484 (Version 1)
Quarter: 2023Q2

REPORT INFORMATION
  Report Type: Spontaneous
  Country: GB (occurrence: GB)
  Receive Date: 20230504
  Receipt Date: 20230504
  Transmission Date: 20230721
  Serious: Yes (Other)
  Sender: FDA-Public Use
  Company Number: None

PATIENT
  Age: 28 Year
  Sex: Male
  Weight: 58 kg

DRUGS (14)
  1. ZONISAMIDE [Suspect]
     Active Substance: ZONISAMIDE
     Indication: Product used for unknown indication
     Dosage: 25 MILLIGRAM
     Route: 065
     Dates: start: 20230111
  2. BETNOVATE [Concomitant]
     Active Substance: BETAMETHASONE
     Dosage: APPLY TO THE AF
     Route: 061
     Dates: start: 20230405
  3. MIDAZOLAM HYDROCHLORIDE [Concomitant]
     Active Substance: MIDAZOLAM HYDROCHLORIDE
     Dosage: 10 MILLIGRAM(THE FULL CONTENTS OF ONE.)
     Route: 065
     Dates: start: 20220923
  4. CALCIUM CARBONATE [Concomitant]
     Active Substance: CALCIUM CARBONATE
     Dosage: 2 DOSAGE FORM, QD(ALTERNATIVE TO EFFERVESCENT TABS)
     Route: 065
     Dates: start: 20220923
  5. CETIRIZINE [Concomitant]
     Active Substance: CETIRIZINE HYDROCHLORIDE
     Dosage: 10 MILLILITER, QD
     Route: 065
     Dates: start: 20220923
  6. CLOBAZAM [Concomitant]
     Active Substance: CLOBAZAM
     Indication: Seizure
     Dosage: 1 DOSAGE FORM( TO BE GIVEN AFTER SECOND SEIZURE)
     Route: 065
     Dates: start: 20220923
  7. CODEINE PHOSPHATE [Concomitant]
     Active Substance: CODEINE PHOSPHATE
     Dosage: 10 MILLILITER, TID
     Route: 065
     Dates: start: 20220923
  8. IBUPROFEN [Concomitant]
     Active Substance: IBUPROFEN
     Indication: Pain
     Dosage: GIVE 5-10ML UP TO 3 TIMES A DAY, TID
     Route: 065
     Dates: start: 20220923
  9. LAMOTRIGINE [Concomitant]
     Active Substance: LAMOTRIGINE
     Dosage: 1 DOSAGE FORM, BID
     Route: 065
     Dates: start: 20220923
  10. POLYETHYLENE GLYCOL 3350\POTASSIUM CHLORIDE\SODIUM BICARBONATE\SODIUM [Concomitant]
     Active Substance: POLYETHYLENE GLYCOL 3350\POTASSIUM CHLORIDE\SODIUM BICARBONATE\SODIUM CHLORIDE
     Dosage: MIX 1-4 SACHETS WITH WATER ONCE DAILY
     Route: 065
     Dates: start: 20220923
  11. ACETAMINOPHEN [Concomitant]
     Active Substance: ACETAMINOPHEN
     Indication: Pain
     Dosage: TAKE 1 OR 2  TABLETS EVERY 4-6 HOURS
     Route: 065
     Dates: start: 20220923
  12. VALPROATE SODIUM [Concomitant]
     Active Substance: VALPROATE SODIUM
     Dosage: 30ML IN THE MORNING AND 30ML TO BE
     Route: 065
     Dates: start: 20220923
  13. MINERAL OIL [Concomitant]
     Active Substance: MINERAL OIL
     Dosage: USE AS DIRECTED
     Route: 065
     Dates: start: 20220729
  14. ZONISAMIDE [Concomitant]
     Active Substance: ZONISAMIDE
     Dosage: 1ML IN AM FOR 2 WEEKS THEN 1ML TO BE
     Route: 065
     Dates: start: 20221220

REACTIONS (5)
  - Disorientation [Recovered/Resolved]
  - Abnormal behaviour [Recovered/Resolved]
  - Psychomotor hyperactivity [Recovered/Resolved]
  - Insomnia [Recovered/Resolved]
  - Agitation [Recovered/Resolved]

NARRATIVE: CASE EVENT DATE: 20230111
